FAERS Safety Report 5040650-5 (Version None)
Quarter: 2006Q2

REPORT INFORMATION
  Report Type: 
  Country: None (occurrence: None)
  Receive Date: 20060630
  Receipt Date: 20060630
  Transmission Date: 20061013
  Serious: Yes (Hospitalization)
  Sender: FDA-Public Use
  Company Number: None

PATIENT
  Age: 77 Year
  Sex: Male
  Weight: 59.9 kg

DRUGS (4)
  1. OXYCODONE 5 MG TAB [Suspect]
  2. ALBUTEROL 90/IPRATROP INHL [Concomitant]
  3. DIAZEPAM [Concomitant]
  4. UREA [Concomitant]

REACTIONS (2)
  - PRURITUS [None]
  - RASH [None]
